FAERS Safety Report 24790654 (Version 2)
Quarter: 2024Q4

REPORT INFORMATION
  Report Type: Spontaneous
  Country: AT (occurrence: AT)
  Receive Date: 20241230
  Receipt Date: 20241230
  Transmission Date: 20250115
  Serious: Yes (Life-Threatening, Other)
  Sender: BRACCO
  Company Number: AT-BASGAGES-2024-008816

PATIENT
  Age: 66 Year
  Sex: Male

DRUGS (1)
  1. IOPAMIDOL [Suspect]
     Active Substance: IOPAMIDOL
     Indication: Computerised tomogram
     Dosage: 1 DF, SINGLE
     Dates: start: 20241209, end: 20241209

REACTIONS (3)
  - Ventricular flutter [Unknown]
  - Ventricular fibrillation [Unknown]
  - Cardioversion [Unknown]

NARRATIVE: CASE EVENT DATE: 20241210
